FAERS Safety Report 7371457-1 (Version None)
Quarter: 2011Q1

REPORT INFORMATION
  Report Type: 
  Country: None (occurrence: None)
  Receive Date: 20110324
  Receipt Date: 20110315
  Transmission Date: 20110831
  Serious: Yes (Death, Hospitalization)
  Sender: FDA-Public Use
  Company Number: DE-NOVOPROD-324972

PATIENT
  Age: 78 Year
  Sex: Male
  Weight: 98.5 kg

DRUGS (5)
  1. INSULIN DETEMIR 2.4 MOL/L [Suspect]
     Dosage: 8 U, QD
     Route: 058
     Dates: start: 20100608, end: 20100626
  2. MOLSIDOMIN [Concomitant]
     Dosage: UNK
     Route: 048
     Dates: start: 20080121
  3. ALLOPURINOL [Concomitant]
     Dosage: UNK
     Route: 048
     Dates: start: 20100615
  4. MARCUMAR [Concomitant]
     Dosage: UNK
     Route: 048
     Dates: start: 20100302
  5. ENALAPRIL MALEATE [Concomitant]
     Dosage: UNK
     Route: 048
     Dates: start: 20060315

REACTIONS (2)
  - BRAIN INJURY [None]
  - FALL [None]
